FAERS Safety Report 4801544-0 (Version None)
Quarter: 2005Q4

REPORT INFORMATION
  Report Type: 
  Country: None (occurrence: None)
  Receive Date: 20051012
  Receipt Date: 20050930
  Transmission Date: 20060501
  Serious: Yes (Hospitalization)
  Sender: FDA-Public Use
  Company Number: 12521

PATIENT
  Age: 69 Year
  Sex: Female

DRUGS (8)
  1. PACLITAXEL [Suspect]
     Indication: NON-SMALL CELL LUNG CANCER
  2. CARBOPLATIN [Suspect]
  3. DMXAA [Suspect]
     Indication: NON-SMALL CELL LUNG CANCER
     Dosage: 1200 IV
     Route: 042
     Dates: start: 20050816, end: 20050816
  4. AUGMENTIN /00852501/ [Concomitant]
  5. CEPHALEXIN [Concomitant]
  6. RANITIDINE [Concomitant]
  7. ACYCLOVIR [Concomitant]
  8. TELMISARTAN [Concomitant]

REACTIONS (3)
  - COLLAPSE OF LUNG [None]
  - CREPITATIONS [None]
  - LOWER RESPIRATORY TRACT INFECTION [None]
